FAERS Safety Report 7900755-5 (Version None)
Quarter: 2011Q4

REPORT INFORMATION
  Report Type: 
  Country: None (occurrence: None)
  Receive Date: 20111108
  Receipt Date: 20111031
  Transmission Date: 20120403
  Serious: Yes (Other)
  Sender: FDA-Public Use
  Company Number: JP-B.I. PHARMACEUTICALS,INC./RIDGEFIELD-2011-BP-24413NB

PATIENT
  Sex: Female

DRUGS (3)
  1. LIVALO [Concomitant]
     Indication: ARTERIOSCLEROSIS
     Dosage: 2 MG
     Route: 048
     Dates: start: 20110922
  2. VERAPAMIL HCL [Concomitant]
     Indication: ATRIAL FIBRILLATION
     Dosage: 40 MG
     Route: 048
  3. PRADAXA [Suspect]
     Indication: ATRIAL FIBRILLATION
     Dosage: 300 MG
     Route: 048
     Dates: start: 20110828, end: 20111018

REACTIONS (8)
  - ABDOMINAL PAIN UPPER [None]
  - GASTRITIS EROSIVE [None]
  - NAUSEA [None]
  - ATRIOVENTRICULAR BLOCK COMPLETE [None]
  - LIVER DISORDER [None]
  - HEADACHE [None]
  - DECREASED APPETITE [None]
  - ACTIVATED PARTIAL THROMBOPLASTIN TIME PROLONGED [None]
